FAERS Safety Report 13961110 (Version 2)
Quarter: 2017Q3

REPORT INFORMATION
  Report Type: Spontaneous
  Country: JP (occurrence: JP)
  Receive Date: 20170912
  Receipt Date: 20170927
  Transmission Date: 20171128
  Serious: Yes (Hospitalization, Other)
  Sender: FDA-Public Use
  Company Number: JP-GLAXOSMITHKLINE-JP2017JPN137904

PATIENT
  Age: 28 Year
  Sex: Female

DRUGS (11)
  1. DEPAS [Concomitant]
     Active Substance: ETIZOLAM
     Dosage: 0.5 MG, QD
  2. LAMICTAL [Suspect]
     Active Substance: LAMOTRIGINE
     Indication: BIPOLAR DISORDER
     Dosage: 50 MG, BID
     Route: 048
  3. DEPAKENE [Concomitant]
     Active Substance: VALPROIC ACID
     Dosage: UNK
     Dates: start: 20170907
  4. DEPAS [Concomitant]
     Active Substance: ETIZOLAM
     Dosage: 41 MG, SINGLE
     Dates: start: 20170904, end: 20170904
  5. SOLANAX [Concomitant]
     Active Substance: ALPRAZOLAM
     Dosage: 0.4 MG, BID
  6. DEPAKENE [Concomitant]
     Active Substance: VALPROIC ACID
     Dosage: 400 MG, BID
  7. HALCION [Concomitant]
     Active Substance: TRIAZOLAM
     Dosage: 5 MG, SINGLE
     Dates: start: 20170904, end: 20170904
  8. LAMICTAL [Suspect]
     Active Substance: LAMOTRIGINE
     Dosage: 1400 MG, SINGLE
     Route: 048
     Dates: start: 20170904, end: 20170904
  9. DEPAKENE [Concomitant]
     Active Substance: VALPROIC ACID
     Dosage: 13200 MG, SINGLE
     Dates: start: 20170904, end: 20170904
  10. SOLANAX [Concomitant]
     Active Substance: ALPRAZOLAM
     Dosage: 16 MG, SINGLE
     Dates: start: 20170904, end: 20170904
  11. LAMICTAL [Suspect]
     Active Substance: LAMOTRIGINE
     Dosage: 25 MG, QOD
     Route: 048
     Dates: start: 20170919

REACTIONS (5)
  - Depression [Recovering/Resolving]
  - Intentional overdose [Unknown]
  - Fatigue [Recovering/Resolving]
  - Altered state of consciousness [Recovered/Resolved]
  - Suicide attempt [Recovered/Resolved]

NARRATIVE: CASE EVENT DATE: 2017
